FAERS Safety Report 5242740-0 (Version None)
Quarter: 2007Q1

REPORT INFORMATION
  Report Type: 
  Country: None (occurrence: None)
  Receive Date: 20070221
  Receipt Date: 20070214
  Transmission Date: 20070707
  Serious: Yes (Other)
  Sender: FDA-Public Use
  Company Number: HU-ROCHE-482784

PATIENT
  Age: 20 Year
  Sex: Female

DRUGS (2)
  1. ROACCUTAN [Suspect]
     Indication: ACNE
     Dosage: DOSAGE REGIMEN REPORTED AS 2X.
     Route: 048
     Dates: start: 20070110
  2. XANAX [Concomitant]
     Indication: PANIC ATTACK

REACTIONS (1)
  - PANIC DISORDER [None]
